FAERS Safety Report 5691933-7 (Version None)
Quarter: 2008Q1

REPORT INFORMATION
  Report Type: 
  Country: None (occurrence: None)
  Receive Date: 20080331
  Receipt Date: 20080313
  Transmission Date: 20080703
  Serious: Yes (Other)
  Sender: FDA-Public Use
  Company Number: ACO_00451_2008

PATIENT
  Sex: Male

DRUGS (2)
  1. TIZANIDINE HYDROCHLORIDE [Suspect]
     Indication: BACK PAIN
     Dosage: (4 MG 1X ORAL)
     Route: 048
     Dates: start: 20080304, end: 20080304
  2. PRONAXEN (PRONAXEN - NAPROXEN) 500 MG [Suspect]
     Indication: DRUG USE FOR UNKNOWN INDICATION
     Dosage: (500 MG 1X ORAL)
     Route: 048
     Dates: start: 20080304

REACTIONS (6)
  - BLOOD PRESSURE DECREASED [None]
  - ERYTHEMA [None]
  - LOSS OF CONSCIOUSNESS [None]
  - MYALGIA [None]
  - NAUSEA [None]
  - PALLOR [None]
